FAERS Safety Report 12744298 (Version 5)
Quarter: 2017Q3

REPORT INFORMATION
  Report Type: Spontaneous
  Country: US (occurrence: US)
  Receive Date: 20160914
  Receipt Date: 20170828
  Transmission Date: 20171127
  Serious: No
  Sender: FDA-Public Use
  Company Number: US-LUNDBECK-DKLU2019130

PATIENT
  Age: 60 Year
  Sex: Male

DRUGS (9)
  1. NORTHERA [Suspect]
     Active Substance: DROXIDOPA
     Route: 065
     Dates: start: 20160913, end: 201610
  2. NORTHERA [Suspect]
     Active Substance: DROXIDOPA
     Dosage: SCHEDULE C TITRATION COMPLETE
     Route: 065
  3. ZOLPIDEM [Concomitant]
     Active Substance: ZOLPIDEM\ZOLPIDEM TARTRATE
     Indication: PRODUCT USED FOR UNKNOWN INDICATION
     Route: 065
  4. ZINC. [Concomitant]
     Active Substance: ZINC
     Indication: PRODUCT USED FOR UNKNOWN INDICATION
     Route: 065
  5. NORTHERA [Suspect]
     Active Substance: DROXIDOPA
     Indication: PRODUCT USED FOR UNKNOWN INDICATION
     Dosage: TITRATION, SCHEDULE C
     Route: 065
     Dates: start: 20160813
  6. NORTHERA [Suspect]
     Active Substance: DROXIDOPA
     Dosage: SCHEDULE C (TITRATION COMPLETE)
     Route: 065
     Dates: end: 20160831
  7. NALTREXONE [Concomitant]
     Active Substance: NALTREXONE
     Indication: PRODUCT USED FOR UNKNOWN INDICATION
     Route: 065
  8. ESZOPICLONE. [Concomitant]
     Active Substance: ESZOPICLONE
     Indication: PRODUCT USED FOR UNKNOWN INDICATION
     Route: 065
  9. MELATONIN [Concomitant]
     Active Substance: MELATONIN
     Indication: PRODUCT USED FOR UNKNOWN INDICATION
     Route: 065

REACTIONS (18)
  - Musculoskeletal stiffness [Recovering/Resolving]
  - Eye movement disorder [Recovering/Resolving]
  - Blood pressure increased [Recovering/Resolving]
  - Hyperhidrosis [Recovering/Resolving]
  - Anxiety [Recovering/Resolving]
  - Malaise [Recovering/Resolving]
  - Asthenia [Recovering/Resolving]
  - Muscular weakness [Recovering/Resolving]
  - Nausea [Recovering/Resolving]
  - Depression [Recovering/Resolving]
  - Insomnia [Recovering/Resolving]
  - Heart rate increased [Recovering/Resolving]
  - Tetany [Recovering/Resolving]
  - Panic attack [Recovering/Resolving]
  - Intentional underdose [Unknown]
  - Raynaud^s phenomenon [Recovering/Resolving]
  - Muscle spasms [Recovering/Resolving]
  - Condition aggravated [Recovering/Resolving]

NARRATIVE: CASE EVENT DATE: 201608
